FAERS Safety Report 20164290 (Version 1)
Quarter: 2021Q4

REPORT INFORMATION
  Report Type: Spontaneous
  Country: CA (occurrence: CA)
  Receive Date: 20211209
  Receipt Date: 20211209
  Transmission Date: 20220303
  Serious: Yes (Other)
  Sender: FDA-Public Use
  Company Number: CA-TEVA-2021-CA-1985254

PATIENT
  Age: 42 Year
  Sex: Female
  Weight: 81 kg

DRUGS (60)
  1. ACETAMINOPHEN [Suspect]
     Active Substance: ACETAMINOPHEN
     Indication: Product used for unknown indication
     Route: 065
  2. LEFLUNOMIDE [Suspect]
     Active Substance: LEFLUNOMIDE
     Indication: Product used for unknown indication
     Route: 065
  3. METHOTREXATE\METHOTREXATE SODIUM [Suspect]
     Active Substance: METHOTREXATE\METHOTREXATE SODIUM
     Indication: Product used for unknown indication
     Route: 065
  4. METHOTREXATE\METHOTREXATE SODIUM [Suspect]
     Active Substance: METHOTREXATE\METHOTREXATE SODIUM
     Route: 065
  5. METHOTREXATE\METHOTREXATE SODIUM [Suspect]
     Active Substance: METHOTREXATE\METHOTREXATE SODIUM
     Route: 065
  6. ACETAMINOPHEN\OXYCODONE HYDROCHLORIDE [Suspect]
     Active Substance: ACETAMINOPHEN\OXYCODONE HYDROCHLORIDE
     Indication: Product used for unknown indication
     Route: 065
  7. ACETAMINOPHEN\OXYCODONE HYDROCHLORIDE [Suspect]
     Active Substance: ACETAMINOPHEN\OXYCODONE HYDROCHLORIDE
     Route: 065
  8. ACTEMRA [Suspect]
     Active Substance: TOCILIZUMAB
     Indication: Product used for unknown indication
     Route: 065
  9. ARAVA [Suspect]
     Active Substance: LEFLUNOMIDE
     Indication: Product used for unknown indication
     Route: 065
  10. CHLORAMPHENICOL [Suspect]
     Active Substance: CHLORAMPHENICOL
     Indication: Product used for unknown indication
     Route: 061
  11. CHLORAPREP ONE-STEP [Suspect]
     Active Substance: CHLORHEXIDINE GLUCONATE\ISOPROPYL ALCOHOL
     Indication: Product used for unknown indication
     Route: 061
  12. CHLORHEXIDINE [Suspect]
     Active Substance: CHLORHEXIDINE
     Indication: Product used for unknown indication
     Route: 065
  13. CHLORHEXIDINE [Suspect]
     Active Substance: CHLORHEXIDINE
     Route: 065
  14. CIMZIA [Suspect]
     Active Substance: CERTOLIZUMAB PEGOL
     Indication: Rheumatoid arthritis
     Route: 058
  15. CIMZIA [Suspect]
     Active Substance: CERTOLIZUMAB PEGOL
     Route: 058
  16. CIMZIA [Suspect]
     Active Substance: CERTOLIZUMAB PEGOL
     Route: 058
  17. CIMZIA [Suspect]
     Active Substance: CERTOLIZUMAB PEGOL
     Route: 058
  18. DEXAMETHASONE [Suspect]
     Active Substance: DEXAMETHASONE
     Indication: Product used for unknown indication
     Route: 061
  19. ENBREL [Suspect]
     Active Substance: ETANERCEPT
     Indication: Rheumatoid arthritis
     Route: 065
  20. ENBREL [Suspect]
     Active Substance: ETANERCEPT
     Route: 058
  21. ENBREL [Suspect]
     Active Substance: ETANERCEPT
     Route: 065
  22. ORENCIA [Suspect]
     Active Substance: ABATACEPT
     Indication: Product used for unknown indication
     Route: 065
  23. ORENCIA [Suspect]
     Active Substance: ABATACEPT
     Route: 042
  24. ORENCIA [Suspect]
     Active Substance: ABATACEPT
     Route: 065
  25. OXYCODONE HYDROCHLORIDE\OXYCODONE TEREPHTHALATE [Suspect]
     Active Substance: OXYCODONE HYDROCHLORIDE\OXYCODONE TEREPHTHALATE
     Indication: Product used for unknown indication
     Route: 065
  26. OXYCODONE HYDROCHLORIDE\OXYCODONE TEREPHTHALATE [Suspect]
     Active Substance: OXYCODONE HYDROCHLORIDE\OXYCODONE TEREPHTHALATE
     Route: 065
  27. OXYCODONE HYDROCHLORIDE\OXYCODONE TEREPHTHALATE [Suspect]
     Active Substance: OXYCODONE HYDROCHLORIDE\OXYCODONE TEREPHTHALATE
     Route: 065
  28. OXYCODONE HYDROCHLORIDE\OXYCODONE TEREPHTHALATE [Suspect]
     Active Substance: OXYCODONE HYDROCHLORIDE\OXYCODONE TEREPHTHALATE
     Route: 065
  29. OXYCODONE HYDROCHLORIDE\OXYCODONE TEREPHTHALATE [Suspect]
     Active Substance: OXYCODONE HYDROCHLORIDE\OXYCODONE TEREPHTHALATE
     Route: 065
  30. PERCOCET [Suspect]
     Active Substance: ACETAMINOPHEN\OXYCODONE HYDROCHLORIDE
     Indication: Product used for unknown indication
     Route: 065
  31. PERIOGARD [Suspect]
     Active Substance: CHLORHEXIDINE GLUCONATE
     Indication: Product used for unknown indication
     Route: 065
  32. SIMPONI [Suspect]
     Active Substance: GOLIMUMAB
     Indication: Product used for unknown indication
     Route: 058
  33. SIMPONI [Suspect]
     Active Substance: GOLIMUMAB
     Route: 065
  34. SIMPONI [Suspect]
     Active Substance: GOLIMUMAB
     Route: 059
  35. XENICAL [Suspect]
     Active Substance: ORLISTAT
     Indication: Product used for unknown indication
     Route: 065
  36. PANTOPRAZOLE SODIUM [Concomitant]
     Active Substance: PANTOPRAZOLE SODIUM
     Route: 065
  37. ASCORBIC ACID [Concomitant]
     Active Substance: ASCORBIC ACID
  38. CETIRIZINE [Concomitant]
     Active Substance: CETIRIZINE HYDROCHLORIDE
  39. CHOLECALCIFEROL [Concomitant]
     Active Substance: CHOLECALCIFEROL
  40. COENZYME Q10 [Concomitant]
     Active Substance: DIETARY SUPPLEMENT\UBIDECARENONE
  41. DESOGESTREL\ETHINYL ESTRADIOL [Concomitant]
     Active Substance: DESOGESTREL\ETHINYL ESTRADIOL
  42. ERGOCALCIFEROL [Concomitant]
     Active Substance: ERGOCALCIFEROL
  43. ETHINYL ESTRADIOL [Concomitant]
     Active Substance: ETHINYL ESTRADIOL
  44. FISH OIL [Concomitant]
     Active Substance: FISH OIL
  45. HYDROXYCHLOROQUINE/HYDROXYCHLOROQUINE SULFATE TABLETS, USP [Concomitant]
  46. IBUPROFEN [Concomitant]
     Active Substance: IBUPROFEN
  47. MIXED TOCOPHEROL VITAMIN E [Concomitant]
  48. OMEGA - 3 [Concomitant]
  49. PANTOPRAZOLE SODIUM [Concomitant]
     Active Substance: PANTOPRAZOLE SODIUM
  50. PANTOPRAZOLE [Concomitant]
     Active Substance: PANTOPRAZOLE
  51. PLAQUENIL [Concomitant]
     Active Substance: HYDROXYCHLOROQUINE SULFATE
     Route: 065
  52. PREDNISONE [Concomitant]
     Active Substance: PREDNISONE
  53. REACTINE [Concomitant]
  54. TYLENOL [Concomitant]
     Active Substance: ACETAMINOPHEN
  55. VENTOLIN [Concomitant]
     Active Substance: ALBUTEROL SULFATE
  56. VITAMIN C [Concomitant]
     Active Substance: ASCORBIC ACID
  57. VITAMIN D3 [Concomitant]
     Active Substance: CHOLECALCIFEROL
  58. VITAMIN D3 [Concomitant]
     Active Substance: CHOLECALCIFEROL
  59. VITAMIN E [Concomitant]
     Active Substance: .ALPHA.-TOCOPHEROL
  60. ZOPICLONE [Concomitant]
     Active Substance: ZOPICLONE

REACTIONS (22)
  - Abdominal pain upper [Unknown]
  - Asthenia [Unknown]
  - Back pain [Unknown]
  - Body temperature increased [Unknown]
  - Diarrhoea [Unknown]
  - Ear pain [Unknown]
  - Headache [Unknown]
  - Insomnia [Unknown]
  - Joint swelling [Unknown]
  - Lower respiratory tract infection [Unknown]
  - Muscle spasticity [Unknown]
  - Nausea [Unknown]
  - Night sweats [Unknown]
  - Pain [Unknown]
  - Peripheral swelling [Unknown]
  - Pruritus [Unknown]
  - Rash [Unknown]
  - Respiratory disorder [Unknown]
  - Sinusitis [Unknown]
  - Urticaria [Unknown]
  - Vomiting [Unknown]
  - Contraindicated product administered [Unknown]
